FAERS Safety Report 8536100-4 (Version None)
Quarter: 2012Q3

REPORT INFORMATION
  Report Type: 
  Country: None (occurrence: None)
  Receive Date: 20120725
  Receipt Date: 20120718
  Transmission Date: 20120928
  Serious: Yes (Hospitalization)
  Sender: FDA-Public Use
  Company Number: IT-UCBSA-051604

PATIENT
  Age: 41 Year
  Sex: Female

DRUGS (3)
  1. LORAZEPAM [Suspect]
     Dosage: UNKNOWN DOSE
     Dates: start: 20120209
  2. TOPIRAMATE [Suspect]
     Dosage: 4-5 DF
     Dates: start: 20120209
  3. VIMPAT [Suspect]
     Indication: EPILEPSY
     Dosage: 100 MG, 56 FILM COATED TABLETS AT A DOSE OF 500 MG
     Route: 048
     Dates: start: 20120209, end: 20120209

REACTIONS (1)
  - MULTIPLE DRUG OVERDOSE INTENTIONAL [None]
